FAERS Safety Report 9179195 (Version 1)
Quarter: 2013Q1

REPORT INFORMATION
  Report Type: Report from Study
  Country: JP (occurrence: JP)
  Receive Date: 20130321
  Receipt Date: 20130321
  Transmission Date: 20140127
  Serious: Yes (Death)
  Sender: FDA-Public Use
  Company Number: JP-GLAXOSMITHKLINE-B0758905A

PATIENT
  Age: 82 Year
  Sex: Male
  Weight: 42 kg

DRUGS (21)
  1. REVOLADE [Suspect]
     Indication: IDIOPATHIC THROMBOCYTOPENIC PURPURA
     Route: 048
     Dates: start: 20110423, end: 20110629
  2. FUROSEMIDE [Suspect]
     Route: 042
     Dates: start: 20110510, end: 20110706
  3. SAMSCA [Suspect]
  4. PZC [Suspect]
  5. EVAMYL [Suspect]
  6. MEROPEN [Suspect]
  7. VANCOMYCIN [Suspect]
  8. FUROSEMIDE [Concomitant]
     Route: 048
     Dates: end: 20110623
  9. RENIVACE [Concomitant]
     Route: 048
     Dates: end: 20110609
  10. HERBESSER R [Concomitant]
     Route: 048
     Dates: end: 20110602
  11. ARTIST [Concomitant]
     Route: 048
     Dates: end: 20110602
  12. TAMSULOSIN [Concomitant]
     Route: 048
     Dates: end: 20110609
  13. FRANDOL S [Concomitant]
     Route: 062
     Dates: end: 20110609
  14. NOVORAPID [Concomitant]
     Route: 058
  15. KARY UNI [Concomitant]
     Route: 031
     Dates: start: 201105, end: 201105
  16. TRAVOPROST [Concomitant]
     Route: 031
     Dates: start: 201105, end: 201105
  17. SAMSCA [Concomitant]
     Route: 048
     Dates: start: 20110525, end: 20110706
  18. GENTACIN [Concomitant]
     Route: 061
     Dates: start: 20110603, end: 20110706
  19. LANSOPRAZOLE [Concomitant]
     Route: 048
     Dates: start: 20110704, end: 20110706
  20. GRAN [Concomitant]
     Dates: start: 20110510, end: 20110706
  21. ALBUMIN [Concomitant]
     Route: 042
     Dates: start: 20110629, end: 20110701

REACTIONS (12)
  - Staphylococcal infection [Fatal]
  - Pneumonia [Fatal]
  - Cardiac failure [Fatal]
  - Insomnia [Not Recovered/Not Resolved]
  - Hyponatraemia [Recovered/Resolved]
  - Neutrophil count decreased [Recovering/Resolving]
  - Tinea infection [Not Recovered/Not Resolved]
  - Decubitus ulcer [Not Recovered/Not Resolved]
  - Constipation [Recovering/Resolving]
  - Hepatic function abnormal [Not Recovered/Not Resolved]
  - Jaundice [Not Recovered/Not Resolved]
  - Renal impairment [Not Recovered/Not Resolved]
